FAERS Safety Report 6253259-2 (Version None)
Quarter: 2009Q3

REPORT INFORMATION
  Report Type: 
  Country: None (occurrence: None)
  Receive Date: 20090701
  Receipt Date: 20090625
  Transmission Date: 20100115
  Serious: Yes (Other)
  Sender: FDA-Public Use
  Company Number: JP-AVENTIS-200911803JP

PATIENT
  Age: 83 Year
  Sex: Male
  Weight: 65 kg

DRUGS (5)
  1. ENOXAPARIN SODIUM [Suspect]
     Route: 058
     Dates: start: 20090120, end: 20090128
  2. BLOPRESS [Concomitant]
     Indication: HYPERTENSION
     Route: 048
  3. CONIEL [Concomitant]
     Indication: HYPERTENSION
     Route: 048
  4. TAKEPRON [Concomitant]
     Route: 048
  5. ALFAROL [Concomitant]

REACTIONS (4)
  - ALANINE AMINOTRANSFERASE INCREASED [None]
  - ASPARTATE AMINOTRANSFERASE INCREASED [None]
  - BLOOD BILIRUBIN INCREASED [None]
  - HEPATIC FUNCTION ABNORMAL [None]
